FAERS Safety Report 9063156 (Version 4)
Quarter: 2013Q2

REPORT INFORMATION
  Report Type: Spontaneous
  Country: DE (occurrence: DE)
  Receive Date: 20130213
  Receipt Date: 20130426
  Transmission Date: 20140414
  Serious: Yes (Life-Threatening, Hospitalization, Other)
  Sender: FDA-Public Use
  Company Number: DE-BRISTOL-MYERS SQUIBB COMPANY-17303272

PATIENT
  Age: 36 Year
  Sex: Male
  Weight: 80 kg

DRUGS (4)
  1. YERVOY [Suspect]
     Indication: MALIGNANT MELANOMA
     Dates: start: 20121220
  2. YERVOY [Suspect]
     Indication: METASTASES TO LIVER
     Dates: start: 20121220
  3. GEMCITABINE [Suspect]
     Indication: METASTATIC MALIGNANT MELANOMA
  4. TREOSULFAN [Suspect]
     Indication: METASTATIC MALIGNANT MELANOMA

REACTIONS (2)
  - Peliosis hepatis [Not Recovered/Not Resolved]
  - Coma hepatic [Not Recovered/Not Resolved]
